FAERS Safety Report 20107452 (Version 1)
Quarter: 2021Q4

REPORT INFORMATION
  Report Type: Spontaneous
  Country: IQ (occurrence: IQ)
  Receive Date: 20211124
  Receipt Date: 20211124
  Transmission Date: 20220303
  Serious: Yes (Death, Hospitalization, Other)
  Sender: FDA-Public Use
  Company Number: IQ-SA-2021SA388334

PATIENT
  Age: 19 Year
  Sex: Male

DRUGS (2)
  1. PLERIXAFOR [Suspect]
     Active Substance: PLERIXAFOR
     Dosage: UNK
  2. GRANULOCYTE COLONY-STIMULATING FACTOR NOS [Suspect]
     Active Substance: GRANULOCYTE COLONY-STIMULATING FACTOR NOS
     Dosage: UNK

REACTIONS (13)
  - Bone marrow necrosis [Fatal]
  - Leukopenia [Fatal]
  - Headache [Fatal]
  - Vision blurred [Fatal]
  - Purpura [Fatal]
  - Ecchymosis [Fatal]
  - Gingival bleeding [Fatal]
  - Epistaxis [Fatal]
  - Anaemia [Fatal]
  - Vitreous haemorrhage [Fatal]
  - Thrombocytopenia [Fatal]
  - Bone pain [Fatal]
  - Vascular occlusion [Fatal]
